FAERS Safety Report 6719524-7 (Version None)
Quarter: 2010Q2

REPORT INFORMATION
  Report Type: 
  Country: None (occurrence: None)
  Receive Date: 20100511
  Receipt Date: 20100429
  Transmission Date: 20101027
  Serious: Yes (Other)
  Sender: FDA-Public Use
  Company Number: US-ROCHE-701704

PATIENT
  Age: 65 Year
  Sex: Female
  Weight: 52.2 kg

DRUGS (3)
  1. BONIVA [Suspect]
     Indication: OSTEOPOROSIS
     Dosage: TREATMENT DISCONTINUED FOR 3 MONTHS
     Route: 048
     Dates: start: 20080501
  2. BONIVA [Suspect]
     Route: 048
  3. CITRACAL [Concomitant]

REACTIONS (2)
  - RIB FRACTURE [None]
  - TOOTH FRACTURE [None]
